FAERS Safety Report 19527966 (Version 7)
Quarter: 2022Q1

REPORT INFORMATION
  Report Type: Report from Study
  Country: US (occurrence: US)
  Receive Date: 20210713
  Receipt Date: 20220331
  Transmission Date: 20220424
  Serious: Yes (Other)
  Sender: FDA-Public Use
  Company Number: NVSC2021US149600

PATIENT
  Age: 41 Year
  Sex: Female

DRUGS (3)
  1. COSENTYX [Suspect]
     Active Substance: SECUKINUMAB
     Indication: Psoriatic arthropathy
     Dosage: 300 MG, QW
     Route: 058
     Dates: start: 20210628
  2. COSENTYX [Suspect]
     Active Substance: SECUKINUMAB
     Indication: Psoriasis
     Dosage: 150 MG (ONCE WEEKLY FOR 5 WEEKS AND THEN ONCE EVERY 4 WEEKS)
     Route: 058
  3. COSENTYX [Suspect]
     Active Substance: SECUKINUMAB
     Dosage: 300 MG, QMO
     Route: 065

REACTIONS (5)
  - Condition aggravated [Unknown]
  - Abdominal discomfort [Recovering/Resolving]
  - Feeling abnormal [Unknown]
  - Psoriasis [Not Recovered/Not Resolved]
  - Product prescribing error [Recovering/Resolving]

NARRATIVE: CASE EVENT DATE: 20210628
